FAERS Safety Report 7319209-2 (Version None)
Quarter: 2011Q1

REPORT INFORMATION
  Report Type: 
  Country: None (occurrence: None)
  Receive Date: 20110228
  Receipt Date: 20110222
  Transmission Date: 20110831
  Serious: Yes (Death, Hospitalization)
  Sender: FDA-Public Use
  Company Number: GB-SANOFI-AVENTIS-2010SA055128

PATIENT
  Age: 79 Year
  Sex: Female

DRUGS (6)
  1. CODEINE SULFATE [Concomitant]
     Route: 048
     Dates: end: 20100802
  2. TAXOTERE [Suspect]
     Route: 041
     Dates: start: 20100723, end: 20100723
  3. LANSOPRAZOLE [Concomitant]
     Route: 048
     Dates: end: 20100802
  4. ATORVASTATIN [Concomitant]
     Route: 048
     Dates: end: 20100802
  5. BISOPROLOL FUMARATE [Concomitant]
     Route: 048
     Dates: end: 20100802
  6. DALTEPARIN SODIUM [Suspect]
     Route: 065
     Dates: start: 20090914, end: 20100228

REACTIONS (3)
  - DIARRHOEA [None]
  - NEUTROPENIC SEPSIS [None]
  - DISEASE PROGRESSION [None]
